FAERS Safety Report 20093308 (Version 1)
Quarter: 2021Q4

REPORT INFORMATION
  Report Type: Spontaneous
  Country: CZ (occurrence: CZ)
  Receive Date: 20211120
  Receipt Date: 20211120
  Transmission Date: 20220303
  Serious: Yes (Other)
  Sender: FDA-Public Use
  Company Number: CZ-PFIZER INC-2020380649

PATIENT
  Age: 68 Year
  Sex: Female

DRUGS (11)
  1. IRINOTECAN [Suspect]
     Active Substance: IRINOTECAN
     Indication: Rectosigmoid cancer metastatic
     Dosage: UNK, FOLFIRI REGIMEN
     Route: 065
     Dates: start: 201709
  2. BEVACIZUMAB [Suspect]
     Active Substance: BEVACIZUMAB
     Indication: Rectosigmoid cancer metastatic
     Dosage: UNK
     Route: 065
     Dates: start: 201709
  3. LEUCOVORIN [Suspect]
     Active Substance: LEUCOVORIN
     Indication: Rectosigmoid cancer metastatic
     Dosage: UNK,9 CYCLES OF FOLFOX REGIMEN
     Route: 065
     Dates: start: 201609
  4. LEUCOVORIN [Suspect]
     Active Substance: LEUCOVORIN
     Dosage: UNK,3 CYCLES OF FUFA REGIMEN
     Route: 065
     Dates: start: 201704
  5. LEUCOVORIN [Suspect]
     Active Substance: LEUCOVORIN
     Dosage: UNK,FOLFIRI REGIMEN
     Route: 065
     Dates: start: 201709
  6. FLUOROURACIL [Suspect]
     Active Substance: FLUOROURACIL
     Indication: Adenocarcinoma of colon
     Dosage: UNK,9 CYCLES OF FOLFOX REGIMEN
     Route: 065
     Dates: start: 201609
  7. FLUOROURACIL [Suspect]
     Active Substance: FLUOROURACIL
     Indication: Rectosigmoid cancer metastatic
     Dosage: UNK,3 CYCLES OF FUFA REGIMEN
     Route: 065
     Dates: start: 201704
  8. FLUOROURACIL [Suspect]
     Active Substance: FLUOROURACIL
     Dosage: UNK,FOLFIRI REGIMEN
     Route: 065
     Dates: start: 201709
  9. LONSURF [Suspect]
     Active Substance: TIPIRACIL HYDROCHLORIDE\TRIFLURIDINE
     Indication: Rectosigmoid cancer metastatic
     Dosage: 35 MILLIGRAM/SQ. METER
     Route: 065
     Dates: start: 201810
  10. LONSURF [Suspect]
     Active Substance: TIPIRACIL HYDROCHLORIDE\TRIFLURIDINE
     Dosage: 30 MILLIGRAM/SQ. METER
     Route: 065
     Dates: start: 2018
  11. OXALIPLATIN [Suspect]
     Active Substance: OXALIPLATIN
     Indication: Rectosigmoid cancer metastatic
     Dosage: UNK,9 CYCLES OF FOLFOX REGIMEN
     Route: 065
     Dates: start: 201609

REACTIONS (8)
  - Thrombocytopenia [Unknown]
  - Neuropathy peripheral [Unknown]
  - Neutropenia [Unknown]
  - Anaemia [Unknown]
  - Decreased appetite [Unknown]
  - Fatigue [Unknown]
  - Malaise [Unknown]
  - Nausea [Unknown]

NARRATIVE: CASE EVENT DATE: 20170901
